FAERS Safety Report 4421976-2 (Version None)
Quarter: 2004Q3

REPORT INFORMATION
  Report Type: 
  Country: None (occurrence: None)
  Receive Date: 20040804
  Receipt Date: 20040713
  Transmission Date: 20050211
  Serious: Yes (Hospitalization)
  Sender: FDA-Public Use
  Company Number: US_0407104208

PATIENT
  Age: 26 Year
  Sex: Female
  Weight: 53 kg

DRUGS (5)
  1. KEFLEX [Suspect]
     Indication: ARTHROPOD BITE
     Dates: start: 20040603
  2. NICODERM [Concomitant]
  3. ROCEPHIN [Concomitant]
  4. DILATIN(PHENYTOIN) [Concomitant]
  5. TOPAMAX [Concomitant]

REACTIONS (11)
  - ASTHENIA [None]
  - BLOOD PRESSURE INCREASED [None]
  - CONVULSION [None]
  - DISTURBANCE IN ATTENTION [None]
  - ELECTROENCEPHALOGRAM ABNORMAL [None]
  - EYE DISORDER [None]
  - FALL [None]
  - HEART RATE INCREASED [None]
  - HYPOAESTHESIA [None]
  - PARAESTHESIA [None]
  - VISION BLURRED [None]
